FAERS Safety Report 8528204 (Version 3)
Quarter: 2013Q1

REPORT INFORMATION
  Report Type: Spontaneous
  Country: CA (occurrence: CA)
  Receive Date: 20120424
  Receipt Date: 20130314
  Transmission Date: 20140127
  Serious: Yes (Other)
  Sender: FDA-Public Use
  Company Number: CA-ELI_LILLY_AND_COMPANY-CA201204003495

PATIENT
  Age: 32 Year
  Sex: Female

DRUGS (11)
  1. CYMBALTA [Suspect]
     Dosage: 30 MG, BID
     Route: 048
     Dates: start: 201007
  2. LYRICA [Concomitant]
     Dosage: 100 MG, BID
     Route: 048
  3. LYRICA [Concomitant]
     Dosage: 125 MG, BID
     Route: 048
  4. LYRICA [Concomitant]
     Dosage: 275 MG, QD
     Route: 048
  5. LYRICA [Concomitant]
     Dosage: 300 MG, TID
  6. LYRICA [Concomitant]
     Dosage: 200 MG, BID
     Route: 048
  7. LYRICA [Concomitant]
     Dosage: 500 MG, QD
  8. LYRICA [Concomitant]
     Dosage: 300 MG, BID
  9. MORPHINE [Concomitant]
     Indication: BACK PAIN
     Dosage: 10 MG, PRN
     Dates: start: 201101
  10. OXYCODONE [Concomitant]
     Indication: BACK PAIN
     Dosage: UNK UNK, PRN
     Dates: start: 200901
  11. ELAVIL [Concomitant]
     Indication: BACK PAIN
     Dosage: 10 MG, BID
     Route: 048
     Dates: start: 2010

REACTIONS (7)
  - Uterine cancer [Recovered/Resolved]
  - Oedema peripheral [Recovered/Resolved]
  - Fibromyalgia [Unknown]
  - Irritability [Recovered/Resolved]
  - Fatigue [Recovered/Resolved]
  - Somnolence [Unknown]
  - Drug ineffective [Unknown]
